FAERS Safety Report 5939354-3 (Version None)
Quarter: 2008Q4

REPORT INFORMATION
  Report Type: 
  Country: None (occurrence: None)
  Receive Date: 20081103
  Receipt Date: 20080804
  Transmission Date: 20090506
  Serious: No
  Sender: FDA-Public Use
  Company Number: US-B.I. PHARMACEUTICALS,INC./RIDGEFIELD-2008-BP-12307BP

PATIENT
  Age: 77 Year
  Sex: Male

DRUGS (6)
  1. FLOMAX [Suspect]
     Indication: BENIGN PROSTATIC HYPERPLASIA
     Dosage: .4MG
     Route: 048
     Dates: start: 20080704
  2. AVODART [Suspect]
     Indication: BENIGN PROSTATIC HYPERPLASIA
  3. COREG [Concomitant]
     Indication: HYPERTENSION
  4. AZORE [Concomitant]
     Indication: HYPERTENSION
  5. MILD TRANQUILIZER (UNSPECIFIED) [Concomitant]
     Indication: NERVOUSNESS
  6. LOMOTIL [Concomitant]
     Indication: DIARRHOEA

REACTIONS (1)
  - DRUG INEFFECTIVE [None]
